FAERS Safety Report 7419852-6 (Version None)
Quarter: 2011Q2

REPORT INFORMATION
  Report Type: 
  Country: None (occurrence: None)
  Receive Date: 20110418
  Receipt Date: 20110404
  Transmission Date: 20111010
  Serious: Yes (Other)
  Sender: FDA-Public Use
  Company Number: US-JNJFOC-20110404195

PATIENT
  Age: 68 Year
  Sex: Female
  Weight: 58.97 kg

DRUGS (5)
  1. OTHER DRUGS (UNSPECIFIED) [Suspect]
     Indication: PAIN
  2. MULTI-VITAMINS [Concomitant]
     Route: 048
  3. BENADRYL [Suspect]
     Route: 048
  4. BENADRYL [Suspect]
     Indication: PRODUCT USED FOR UNKNOWN INDICATION
     Route: 048
  5. CRESTOR [Concomitant]
     Route: 048

REACTIONS (4)
  - APPLICATION SITE MASS [None]
  - OVERDOSE [None]
  - ACCIDENTAL OVERDOSE [None]
  - DRUG HYPERSENSITIVITY [None]
